FAERS Safety Report 17581226 (Version 1)
Quarter: 2020Q1

REPORT INFORMATION
  Report Type: Spontaneous
  Country: FR (occurrence: FR)
  Receive Date: 20200325
  Receipt Date: 20200325
  Transmission Date: 20200409
  Serious: Yes (Other)
  Sender: FDA-Public Use
  Company Number: NVSC2020FR083869

PATIENT
  Age: 95 Year
  Sex: Female

DRUGS (1)
  1. AMOXICILLINE/ACIDE CLAVULANIQUE SANDOZ 1 G/200 MG, POUDRE POUR SOLUTIO [Suspect]
     Active Substance: AMOXICILLIN\CLAVULANIC ACID
     Indication: URINARY TRACT INFECTION
     Dosage: 1 DF, TID (1G/ 200MG)
     Route: 042
     Dates: start: 20200316

REACTIONS (1)
  - Hepatotoxicity [Unknown]

NARRATIVE: CASE EVENT DATE: 20200320
